FAERS Safety Report 15741151 (Version 1)
Quarter: 2018Q4

REPORT INFORMATION
  Report Type: Report from Study
  Country: US (occurrence: US)
  Receive Date: 20181219
  Receipt Date: 20181219
  Transmission Date: 20190205
  Serious: Yes (Death, Hospitalization)
  Sender: FDA-Public Use
  Company Number: US-GILEAD-2018-0380703

PATIENT
  Age: 73 Year
  Sex: Male

DRUGS (15)
  1. ALLOPURINOL. [Concomitant]
     Active Substance: ALLOPURINOL
  2. BUMETANIDE. [Suspect]
     Active Substance: BUMETANIDE
     Indication: PRODUCT USED FOR UNKNOWN INDICATION
     Route: 065
  3. HUMALOG [Concomitant]
     Active Substance: INSULIN LISPRO
  4. CALCITRIOL. [Concomitant]
     Active Substance: CALCITRIOL
  5. POTASSIUM CHLORIDE. [Concomitant]
     Active Substance: POTASSIUM CHLORIDE
  6. METOLAZONE. [Suspect]
     Active Substance: METOLAZONE
     Indication: PRODUCT USED FOR UNKNOWN INDICATION
     Route: 065
  7. MIDODRINE [Suspect]
     Active Substance: MIDODRINE
     Indication: PRODUCT USED FOR UNKNOWN INDICATION
     Route: 065
  8. PLAVIX [Concomitant]
     Active Substance: CLOPIDOGREL BISULFATE
  9. SILDENAFIL. [Concomitant]
     Active Substance: SILDENAFIL
  10. BREO ELLIPTA [Concomitant]
     Active Substance: FLUTICASONE FUROATE\VILANTEROL TRIFENATATE
  11. AMBRISENTAN [Suspect]
     Active Substance: AMBRISENTAN
     Indication: PRODUCT USED FOR UNKNOWN INDICATION
     Dosage: 10 MG, QD
     Route: 065
  12. PRAVASTATIN. [Concomitant]
     Active Substance: PRAVASTATIN
  13. ALBUTEROL [SALBUTAMOL] [Concomitant]
     Active Substance: ALBUTEROL
  14. WARFARIN [Concomitant]
     Active Substance: WARFARIN
  15. OXYCODONE [Concomitant]
     Active Substance: OXYCODONE

REACTIONS (2)
  - Fluid retention [Fatal]
  - Blood sodium increased [Not Recovered/Not Resolved]
